FAERS Safety Report 17974133 (Version 1)
Quarter: 2020Q3

REPORT INFORMATION
  Report Type: Spontaneous
  Country: US (occurrence: US)
  Receive Date: 20200702
  Receipt Date: 20200702
  Transmission Date: 20201103
  Serious: Yes (Other)
  Sender: FDA-Public Use
  Company Number: None

PATIENT
  Age: 33 Year
  Sex: Female
  Weight: 74.25 kg

DRUGS (7)
  1. NATURES OWN MULTIVITAMIN [Concomitant]
  2. ALPRAZOLAM. [Concomitant]
     Active Substance: ALPRAZOLAM
  3. DEXTROAMPHET SACCHARAT, AMPHET ASPARTATE, DEXTROAMPHET SULFATE AND AMPHET SULFAT [Suspect]
     Active Substance: AMPHETAMINE ASPARTATE\AMPHETAMINE SULFATE\DEXTROAMPHETAMINE SACCHARATE\DEXTROAMPHETAMINE SULFATE
     Indication: ATTENTION DEFICIT HYPERACTIVITY DISORDER
     Dates: start: 20200626, end: 20200702
  4. NP THYROID [Concomitant]
     Active Substance: LEVOTHYROXINE\LIOTHYRONINE
  5. CYCLOBENZAPRINE. [Concomitant]
     Active Substance: CYCLOBENZAPRINE
  6. TRAZODONE [Concomitant]
     Active Substance: TRAZODONE HYDROCHLORIDE
  7. LUNESTA [Concomitant]
     Active Substance: ESZOPICLONE

REACTIONS (8)
  - Agitation [None]
  - Palpitations [None]
  - Insomnia [None]
  - Chest pain [None]
  - Anxiety [None]
  - Headache [None]
  - Mood swings [None]
  - Oropharyngeal pain [None]

NARRATIVE: CASE EVENT DATE: 20200626
